FAERS Safety Report 6638235-X (Version None)
Quarter: 2010Q1

REPORT INFORMATION
  Report Type: 
  Country: None (occurrence: None)
  Receive Date: 20100301
  Receipt Date: 20090427
  Transmission Date: 20100710
  Serious: Yes (Hospitalization, Other)
  Sender: FDA-Public Use
  Company Number: RB-14816-2009

PATIENT
  Age: 1 Day
  Sex: Male

DRUGS (3)
  1. SUBOXONE [Suspect]
     Indication: DRUG DEPENDENCE
     Dosage: 8 MG QD TRANSPLACENTAL
     Route: 064
     Dates: start: 20080305, end: 20080619
  2. SUBUTEX [Suspect]
     Indication: DRUG DEPENDENCE
     Dosage: 8 MG QD TRANSPLACENTAL, 10 MG QD TRANSPLACENTAL
     Route: 064
     Dates: start: 20080620, end: 20080801
  3. SUBUTEX [Suspect]
     Indication: DRUG DEPENDENCE
     Dosage: 8 MG QD TRANSPLACENTAL, 10 MG QD TRANSPLACENTAL
     Route: 064
     Dates: start: 20080801, end: 20081201

REACTIONS (1)
  - DRUG WITHDRAWAL SYNDROME NEONATAL [None]
